FAERS Safety Report 11045716 (Version 3)
Quarter: 2015Q3

REPORT INFORMATION
  Report Type: Spontaneous
  Country: US (occurrence: US)
  Receive Date: 20150417
  Receipt Date: 20150706
  Transmission Date: 20151125
  Serious: Yes (Other)
  Sender: FDA-Public Use
  Company Number: US-PFIZER INC-2015127662

PATIENT
  Age: 48 Year
  Sex: Female
  Weight: 87 kg

DRUGS (2)
  1. LYRICA [Suspect]
     Active Substance: PREGABALIN
     Dosage: 50 MG, 3X/DAY
     Route: 048
     Dates: start: 201404
  2. LYRICA [Suspect]
     Active Substance: PREGABALIN
     Indication: POST THROMBOTIC SYNDROME
     Dosage: 100 MG, 3X/DAY
     Dates: start: 20130625

REACTIONS (4)
  - Malaise [Recovered/Resolved]
  - Suicidal ideation [Recovered/Resolved]
  - Pain [Recovered/Resolved]
  - Drug withdrawal syndrome [Recovered/Resolved]

NARRATIVE: CASE EVENT DATE: 201504
